FAERS Safety Report 4319595-1 (Version None)
Quarter: 2004Q1

REPORT INFORMATION
  Report Type: 
  Country: None (occurrence: None)
  Receive Date: 20040318
  Receipt Date: 20040318
  Transmission Date: 20041129
  Serious: Yes (Hospitalization)
  Sender: FDA-Public Use
  Company Number: None

PATIENT
  Age: 25 Year
  Sex: Female
  Weight: 52.1637 kg

DRUGS (2)
  1. XYREM [Suspect]
     Indication: CHRONIC FATIGUE SYNDROME
     Dosage: 9ML AT BEDTIME ORAL
     Route: 048
     Dates: start: 20040312, end: 20040312
  2. XYREM [Suspect]
     Indication: FIBROMYALGIA
     Dosage: 9ML AT BEDTIME ORAL
     Route: 048
     Dates: start: 20040312, end: 20040312

REACTIONS (9)
  - CRYING [None]
  - EUPHORIC MOOD [None]
  - FEAR [None]
  - HEADACHE [None]
  - MUSCULOSKELETAL STIFFNESS [None]
  - PARAESTHESIA [None]
  - SOMNOLENCE [None]
  - VISUAL DISTURBANCE [None]
  - VOMITING [None]
